FAERS Safety Report 9854733 (Version 1)
Quarter: 2014Q1

REPORT INFORMATION
  Report Type: Spontaneous
  Country: ES (occurrence: ES)
  Receive Date: 20140130
  Receipt Date: 20140130
  Transmission Date: 20141002
  Serious: Yes (Hospitalization, Other)
  Sender: FDA-Public Use
  Company Number: ES-009507513-1401ESP010489

PATIENT
  Age: 22 Year
  Sex: Female

DRUGS (1)
  1. NUVARING [Suspect]
     Dosage: UNK, UNKNOWN
     Route: 067
     Dates: start: 2010

REACTIONS (5)
  - Staphylococcal infection [Recovered/Resolved]
  - Mammoplasty [Recovered/Resolved]
  - Post procedural complication [Unknown]
  - Debridement [Recovering/Resolving]
  - Menstruation delayed [Recovered/Resolved]
